FAERS Safety Report 26056209 (Version 1)
Quarter: 2025Q4

REPORT INFORMATION
  Report Type: Spontaneous
  Country: EU (occurrence: EU)
  Receive Date: 20251118
  Receipt Date: 20251118
  Transmission Date: 20260118
  Serious: Yes (Hospitalization)
  Sender: HIKMA
  Company Number: None

PATIENT
  Age: 55 Year
  Sex: Male
  Weight: 74 kg

DRUGS (6)
  1. BACTRIM [Suspect]
     Active Substance: SULFAMETHOXAZOLE\TRIMETHOPRIM
     Indication: Legionella infection
     Dosage: 1200 MILLIGRAM, Q8H
     Route: 042
     Dates: start: 20250122, end: 20250217
  2. IOMERON [Suspect]
     Active Substance: IOMEPROL
     Indication: Imaging procedure
     Dosage: 80 MILLILITER, SINGLE
     Route: 042
     Dates: start: 20250106, end: 20250106
  3. IOMERON [Suspect]
     Active Substance: IOMEPROL
     Dosage: 80 MILLILITER, SINGLE
     Route: 042
     Dates: start: 20250110, end: 20250110
  4. IOMERON [Suspect]
     Active Substance: IOMEPROL
     Dosage: 80 MILLILITER, SINGLE
     Route: 042
     Dates: start: 20250119, end: 20250119
  5. IOMERON [Suspect]
     Active Substance: IOMEPROL
     Dosage: 80 MILLILITER, SINGLE
     Route: 042
     Dates: start: 20250204, end: 20250204
  6. TIGECYCLINE [Suspect]
     Active Substance: TIGECYCLINE
     Indication: Legionella infection
     Dosage: 100 MILLIGRAM, Q12H
     Route: 042
     Dates: start: 20250131, end: 20250215

REACTIONS (1)
  - Rash morbilliform [Recovered/Resolved]

NARRATIVE: CASE EVENT DATE: 20250214
